FAERS Safety Report 4370479-2 (Version None)
Quarter: 2004Q2

REPORT INFORMATION
  Report Type: 
  Country: None (occurrence: None)
  Receive Date: 20040525
  Receipt Date: 20040512
  Transmission Date: 20050107
  Serious: Yes (Death)
  Sender: FDA-Public Use
  Company Number: K200301775

PATIENT

DRUGS (7)
  1. ALTACE [Suspect]
  2. FLUTICASONE PROPIONATE [Concomitant]
  3. DERMOVATE (CLOBETASOL PROPIONATE) [Concomitant]
  4. TIMOLOL MALEATE [Concomitant]
  5. ALLOPURINOL [Concomitant]
  6. ATORVASTATIN (ATORVASTATIN) [Concomitant]
  7. ATENOLOL [Concomitant]

REACTIONS (4)
  - CORONARY ARTERY STENOSIS [None]
  - INJURY [None]
  - ROAD TRAFFIC ACCIDENT [None]
  - SUDDEN CARDIAC DEATH [None]
